FAERS Safety Report 6078044-6 (Version None)
Quarter: 2009Q1

REPORT INFORMATION
  Report Type: 
  Country: None (occurrence: None)
  Receive Date: 20090121
  Receipt Date: 20080929
  Transmission Date: 20090719
  Serious: Yes (Other)
  Sender: FDA-Public Use
  Company Number: US-WYE-H06189508

PATIENT
  Age: 46 Year
  Sex: Female
  Weight: 72.64 kg

DRUGS (3)
  1. ADVIL PM [Suspect]
     Indication: INSOMNIA
     Dosage: 2 CAPLETS AT ONCE, ORAL
     Route: 048
     Dates: start: 20080501, end: 20080501
  2. ASCORBIC ACID [Concomitant]
  3. MULTIVITAMINS, PLAIN (MULTIVITAMINS, PLAIN) [Concomitant]

REACTIONS (1)
  - RESTLESSNESS [None]
